FAERS Safety Report 22153284 (Version 1)
Quarter: 2023Q1

REPORT INFORMATION
  Report Type: Spontaneous
  Country: CA (occurrence: CA)
  Receive Date: 20230329
  Receipt Date: 20230329
  Transmission Date: 20230417
  Serious: Yes (Hospitalization, Other)
  Sender: FDA-Public Use
  Company Number: CA-GLAXOSMITHKLINE-CA2023AMR043610

PATIENT
  Age: 59 Year
  Sex: Female

DRUGS (1)
  1. AMBRISENTAN [Suspect]
     Active Substance: AMBRISENTAN
     Indication: Pulmonary arterial hypertension
     Dosage: 10 MG, QD
     Route: 048
     Dates: start: 20210506

REACTIONS (6)
  - Syncope [Unknown]
  - Feeling abnormal [Unknown]
  - Vomiting [Unknown]
  - Gastrointestinal disorder [Unknown]
  - Flatulence [Unknown]
  - Pain in extremity [Recovering/Resolving]
